FAERS Safety Report 9702393 (Version 2)
Quarter: 2013Q4

REPORT INFORMATION
  Report Type: Spontaneous
  Country: TH (occurrence: TH)
  Receive Date: 20131121
  Receipt Date: 20131121
  Transmission Date: 20140711
  Serious: Yes (Hospitalization)
  Sender: FDA-Public Use
  Company Number: TH-JNJFOC-20121107402

PATIENT
  Sex: Male

DRUGS (2)
  1. TOPIRAMATE [Suspect]
     Indication: ALCOHOL DETOXIFICATION
     Dosage: 100?300 MG/DAY
     Route: 048
  2. TOPIRAMATE [Suspect]
     Indication: ALCOHOL DETOXIFICATION
     Route: 048

REACTIONS (13)
  - Investigation [Unknown]
  - Treatment noncompliance [Unknown]
  - Paraesthesia [Unknown]
  - Dysgeusia [Unknown]
  - Decreased appetite [Unknown]
  - Disturbance in attention [Unknown]
  - Pruritus [Unknown]
  - Headache [Unknown]
  - Fatigue [Unknown]
  - Somnolence [Unknown]
  - Psychomotor retardation [Unknown]
  - Arthralgia [Unknown]
  - Off label use [Unknown]
